FAERS Safety Report 4476673-4 (Version None)
Quarter: 2004Q4

REPORT INFORMATION
  Report Type: 
  Country: None (occurrence: None)
  Receive Date: 20041015
  Receipt Date: 20041015
  Transmission Date: 20050328
  Serious: No
  Sender: FDA-Public Use
  Company Number: None

PATIENT
  Age: 61 Year
  Sex: Female
  Weight: 136.0791 kg

DRUGS (12)
  1. OXYCONTIN [Suspect]
     Indication: PAIN
     Dosage: 20 MG PO Q 12 HRS
     Route: 048
     Dates: start: 20040722
  2. VANCOMYCIN [Concomitant]
  3. VIOXX [Concomitant]
  4. TYLENOL [Concomitant]
  5. COLACE [Concomitant]
  6. COUMADIN [Concomitant]
  7. OXYCODONE [Concomitant]
  8. MORPHINE [Concomitant]
  9. METFORMIN HCL [Concomitant]
  10. GLIPIZIDE [Concomitant]
  11. FEOSOL [Concomitant]
  12. EFFEXOR XR [Concomitant]

REACTIONS (6)
  - ANURIA [None]
  - CONFUSIONAL STATE [None]
  - DEPRESSED LEVEL OF CONSCIOUSNESS [None]
  - POST PROCEDURAL COMPLICATION [None]
  - POSTOPERATIVE RENAL FAILURE [None]
  - SOMNOLENCE [None]
